FAERS Safety Report 10914604 (Version 2)
Quarter: 2015Q2

REPORT INFORMATION
  Report Type: Spontaneous
  Country: US (occurrence: US)
  Receive Date: 20150313
  Receipt Date: 20150612
  Transmission Date: 20150821
  Serious: No
  Sender: FDA-Public Use
  Company Number: US-GLAXOSMITHKLINE-US2015025571

PATIENT
  Age: 82 Year
  Sex: Male

DRUGS (1)
  1. VENTOLIN HFA [Suspect]
     Active Substance: ALBUTEROL SULFATE
     Indication: PULMONARY CONGESTION
     Dosage: 2 PUFF(S), PRN
     Route: 055
     Dates: start: 201502

REACTIONS (3)
  - Off label use [Unknown]
  - Device use error [Unknown]
  - Adverse event [Unknown]

NARRATIVE: CASE EVENT DATE: 201502
